FAERS Safety Report 4786471-X (Version None)
Quarter: 2005Q3

REPORT INFORMATION
  Report Type: 
  Country: None (occurrence: None)
  Receive Date: 20050914
  Receipt Date: 20050214
  Transmission Date: 20060218
  Serious: Yes (Hospitalization)
  Sender: FDA-Public Use
  Company Number: 163-20785-05020245

PATIENT
  Age: 51 Year
  Sex: Male

DRUGS (4)
  1. THALOMID [Suspect]
     Indication: MULTIPLE MYELOMA
     Dosage: 200 MG, QHS, ORAL;  100 MG, QHS, ORAL;  100 - 200MG, QHS, ORAL
     Route: 048
     Dates: end: 20050210
  2. THALOMID [Suspect]
     Indication: MULTIPLE MYELOMA
     Dosage: 200 MG, QHS, ORAL;  100 MG, QHS, ORAL;  100 - 200MG, QHS, ORAL
     Route: 048
     Dates: start: 20050107
  3. THALOMID [Suspect]
     Indication: MULTIPLE MYELOMA
     Dosage: 200 MG, QHS, ORAL;  100 MG, QHS, ORAL;  100 - 200MG, QHS, ORAL
     Route: 048
     Dates: start: 20050214
  4. DECADRON [Concomitant]

REACTIONS (7)
  - CONSTIPATION [None]
  - DEEP VEIN THROMBOSIS [None]
  - DIZZINESS [None]
  - FATIGUE [None]
  - HEART RATE IRREGULAR [None]
  - MUSCLE SPASMS [None]
  - OEDEMA PERIPHERAL [None]
